FAERS Safety Report 14074269 (Version 1)
Quarter: 2017Q4

REPORT INFORMATION
  Report Type: Spontaneous
  Country: US (occurrence: None)
  Receive Date: 20171011
  Receipt Date: 20171011
  Transmission Date: 20180321
  Serious: No
  Sender: FDA-Public Use
  Company Number: None

PATIENT
  Age: 49 Year
  Sex: Female

DRUGS (1)
  1. CAPECITABINE TAB 500MG [Suspect]
     Active Substance: CAPECITABINE

REACTIONS (5)
  - Headache [None]
  - Chills [None]
  - Asthenia [None]
  - Eating disorder [None]
  - Abdominal pain [None]

NARRATIVE: CASE EVENT DATE: 20171002
